FAERS Safety Report 8180456 (Version 12)
Quarter: 2014Q1

REPORT INFORMATION
  Report Type: Spontaneous
  Country: US (occurrence: US)
  Receive Date: 20111014
  Receipt Date: 20140310
  Transmission Date: 20141002
  Serious: Yes (Hospitalization)
  Sender: FDA-Public Use
  Company Number: US-BIOGENIDEC-2011BI038041

PATIENT
  Age: 41 Year
  Sex: Female

DRUGS (4)
  1. AVONEX [Suspect]
     Indication: MULTIPLE SCLEROSIS
     Route: 030
     Dates: start: 19960610
  2. AVONEX [Suspect]
     Indication: MULTIPLE SCLEROSIS
     Route: 030
     Dates: start: 19970715, end: 19980610
  3. AVONEX [Suspect]
     Indication: MULTIPLE SCLEROSIS
     Route: 030
     Dates: end: 19980715
  4. AVONEX [Suspect]
     Indication: MULTIPLE SCLEROSIS
     Route: 030

REACTIONS (33)
  - Influenza like illness [Unknown]
  - Headache [Not Recovered/Not Resolved]
  - Depression [Unknown]
  - Vomiting [Not Recovered/Not Resolved]
  - Diarrhoea [Not Recovered/Not Resolved]
  - Fall [Recovered/Resolved]
  - Localised infection [Unknown]
  - Cellulitis [Recovered/Resolved with Sequelae]
  - Head injury [Unknown]
  - Dizziness [Not Recovered/Not Resolved]
  - Multiple sclerosis relapse [Recovered/Resolved]
  - Panic attack [Unknown]
  - Local swelling [Not Recovered/Not Resolved]
  - Limb injury [Unknown]
  - Balance disorder [Unknown]
  - Musculoskeletal disorder [Recovered/Resolved]
  - Adverse drug reaction [Recovered/Resolved with Sequelae]
  - Vertigo [Recovered/Resolved]
  - Fear [Unknown]
  - Gait disturbance [Unknown]
  - Reading disorder [Not Recovered/Not Resolved]
  - Loss of control of legs [Unknown]
  - Nervousness [Not Recovered/Not Resolved]
  - Panic disorder [Unknown]
  - Abdominal pain upper [Unknown]
  - Hemiparesis [Recovered/Resolved with Sequelae]
  - Nasopharyngitis [Unknown]
  - Arthritis [Not Recovered/Not Resolved]
  - Musculoskeletal stiffness [Not Recovered/Not Resolved]
  - Pain in extremity [Not Recovered/Not Resolved]
  - Nausea [Not Recovered/Not Resolved]
  - Anxiety [Not Recovered/Not Resolved]
  - Feeling abnormal [Unknown]
